FAERS Safety Report 17813863 (Version 1)
Quarter: 2020Q2

REPORT INFORMATION
  Report Type: Report from Study
  Country: KR (occurrence: KR)
  Receive Date: 20200521
  Receipt Date: 20200521
  Transmission Date: 20200714
  Serious: Yes (Hospitalization)
  Sender: FDA-Public Use
  Company Number: NVSC2020KR139159

PATIENT
  Age: 44 Year
  Sex: Male
  Weight: 52.8 kg

DRUGS (2)
  1. MELOBIC [Concomitant]
     Indication: PSORIATIC ARTHROPATHY
     Dosage: 1 DF, BID
     Route: 065
     Dates: start: 20181011, end: 20200416
  2. COSENTYX [Suspect]
     Active Substance: SECUKINUMAB
     Indication: PSORIATIC ARTHROPATHY
     Dosage: 150 MG, UNKNOWN
     Route: 058
     Dates: start: 20200118, end: 20200418

REACTIONS (13)
  - Myalgia [Recovered/Resolved]
  - Nausea [Recovered/Resolved]
  - Pyrexia [Recovered/Resolved]
  - Chills [Recovered/Resolved]
  - Chromaturia [Recovered/Resolved]
  - Abdominal pain [Recovered/Resolved]
  - Chills [Recovered/Resolved]
  - Myalgia [Recovered/Resolved]
  - Melaena [Recovered/Resolved]
  - Ileal ulcer [Recovered/Resolved]
  - Pyrexia [Recovered/Resolved]
  - Tenderness [Recovered/Resolved]
  - Nausea [Recovered/Resolved]

NARRATIVE: CASE EVENT DATE: 20200406
